FAERS Safety Report 7803294-5 (Version None)
Quarter: 2011Q4

REPORT INFORMATION
  Report Type: 
  Country: None (occurrence: None)
  Receive Date: 20111005
  Receipt Date: 20110920
  Transmission Date: 20120403
  Serious: Yes (Other)
  Sender: FDA-Public Use
  Company Number: 2011SGN00107

PATIENT
  Age: 19 Year
  Sex: Male
  Weight: 60.7 kg

DRUGS (4)
  1. ATIVAN [Concomitant]
  2. NEURONTIN [Concomitant]
  3. SGN-35 (CAC10-VCMMAE) INJECTION [Suspect]
     Indication: NON-HODGKIN'S LYMPHOMA
     Dosage: 1.8 MG/KG, Q21D, INTRAVENOUS
     Route: 042
     Dates: start: 20101216, end: 20110512
  4. VICODIN [Concomitant]

REACTIONS (6)
  - THROMBOCYTOPENIA [None]
  - NERVOUS SYSTEM DISORDER [None]
  - LYMPHADENOPATHY [None]
  - POSITIVE ROMBERGISM [None]
  - NEUROPATHY PERIPHERAL [None]
  - ATAXIA [None]
